FAERS Safety Report 6111472-9 (Version None)
Quarter: 2009Q1

REPORT INFORMATION
  Report Type: 
  Country: None (occurrence: None)
  Receive Date: 20090310
  Receipt Date: 20090310
  Transmission Date: 20090719
  Serious: Yes (Life-Threatening, Hospitalization)
  Sender: FDA-Public Use
  Company Number: None

PATIENT
  Age: 56 Year
  Sex: Male
  Weight: 120.2032 kg

DRUGS (1)
  1. ZESTRIL [Suspect]
     Indication: HYPERTENSION

REACTIONS (22)
  - ABSCESS DRAINAGE [None]
  - ARTHRALGIA [None]
  - ASTHENIA [None]
  - DISTURBANCE IN ATTENTION [None]
  - DYSPEPSIA [None]
  - DYSPNOEA EXERTIONAL [None]
  - FEAR OF DEATH [None]
  - FEELING ABNORMAL [None]
  - INFECTION SUSCEPTIBILITY INCREASED [None]
  - INSOMNIA [None]
  - MUSCLE SPASMS [None]
  - ORAL SURGERY [None]
  - OROPHARYNGEAL PAIN [None]
  - PAIN [None]
  - PNEUMONIA [None]
  - PULMONARY CONGESTION [None]
  - RESPIRATORY ARREST [None]
  - RESTLESS LEGS SYNDROME [None]
  - SHOCK [None]
  - SWELLING FACE [None]
  - THROAT TIGHTNESS [None]
  - WOUND SECRETION [None]
